FAERS Safety Report 7225834-X (Version None)
Quarter: 2011Q1

REPORT INFORMATION
  Report Type: 
  Country: None (occurrence: None)
  Receive Date: 20110113
  Receipt Date: 20110112
  Transmission Date: 20110831
  Serious: Yes (Hospitalization)
  Sender: FDA-Public Use
  Company Number: CH-PFIZER INC-2011007431

PATIENT
  Age: 73 Year
  Sex: Female

DRUGS (7)
  1. LAMICTAL [Suspect]
     Indication: EPILEPSY
     Dosage: 75 MG, 2X/DAY
     Route: 048
  2. URBANYL [Concomitant]
     Dosage: 5 MG, 2X/DAY
     Route: 048
  3. NORVASC [Suspect]
     Dosage: 5 MG, 1X/DAY
     Route: 048
  4. VALPROATE SODIUM [Suspect]
     Indication: EPILEPSY
     Dosage: 300 MG, 5X/DAY
     Route: 048
  5. DIOVAN [Concomitant]
     Dosage: 40 MG, 2X/DAY
     Route: 048
  6. PRAVASTATIN [Concomitant]
     Dosage: 20 MG, 1X/DAY
     Route: 048
  7. MAGNESIOCARD [Concomitant]
     Dosage: 5 MMOL, 1X/DAY
     Route: 048

REACTIONS (3)
  - CONFUSIONAL STATE [None]
  - ACCIDENTAL OVERDOSE [None]
  - HYPONATRAEMIA [None]
